FAERS Safety Report 4995456-X (Version None)
Quarter: 2006Q2

REPORT INFORMATION
  Report Type: 
  Country: None (occurrence: None)
  Receive Date: 20060508
  Receipt Date: 20060418
  Transmission Date: 20061013
  Serious: Yes (Death, Other)
  Sender: FDA-Public Use
  Company Number: JP-BRISTOL-MYERS SQUIBB COMPANY-13350558

PATIENT
  Age: 81 Year
  Sex: Female

DRUGS (6)
  1. TAXOL [Suspect]
     Indication: OVARIAN CANCER
     Route: 042
     Dates: start: 20060323, end: 20060413
  2. PARAPLATIN [Suspect]
     Indication: OVARIAN CANCER
     Route: 042
     Dates: start: 20060323, end: 20060413
  3. DEXAMETHASONE SODIUM PHOSPHATE [Concomitant]
     Route: 042
  4. RANITIDINE HCL [Concomitant]
     Route: 042
  5. GRANISETRON HCL [Concomitant]
     Route: 042
  6. DIPHENHYDRAMINE HCL [Concomitant]
     Route: 048
     Dates: start: 20060323, end: 20060413

REACTIONS (10)
  - ASPARTATE AMINOTRANSFERASE INCREASED [None]
  - BLOOD POTASSIUM INCREASED [None]
  - BLOOD SODIUM DECREASED [None]
  - DISSEMINATED INTRAVASCULAR COAGULATION [None]
  - HYPOXIA [None]
  - MORGANELLA INFECTION [None]
  - MYALGIA [None]
  - PLEURAL EFFUSION [None]
  - RENAL FAILURE ACUTE [None]
  - WHITE BLOOD CELL COUNT DECREASED [None]
